FAERS Safety Report 6217871-9 (Version None)
Quarter: 2009Q2

REPORT INFORMATION
  Report Type: 
  Country: None (occurrence: None)
  Receive Date: 20090608
  Receipt Date: 20090529
  Transmission Date: 20091009
  Serious: Yes (Other)
  Sender: FDA-Public Use
  Company Number: LV-ROCHE-635474

PATIENT
  Sex: Female
  Weight: 63 kg

DRUGS (2)
  1. CAPECITABINE [Suspect]
     Route: 048
     Dates: start: 20080414, end: 20080909
  2. DOCETAXEL [Concomitant]
     Dates: start: 20080414, end: 20080909

REACTIONS (8)
  - ASTHENIA [None]
  - DIARRHOEA [None]
  - HYPERAEMIA [None]
  - MOUTH ULCERATION [None]
  - OEDEMA MOUTH [None]
  - OEDEMA PERIPHERAL [None]
  - PAIN IN EXTREMITY [None]
  - PARONYCHIA [None]
